FAERS Safety Report 14566388 (Version 3)
Quarter: 2018Q3

REPORT INFORMATION
  Report Type: Spontaneous
  Country: US (occurrence: US)
  Receive Date: 20180223
  Receipt Date: 20180822
  Transmission Date: 20181010
  Serious: Yes (Other)
  Sender: FDA-Public Use
  Company Number: US-BAYER-2018-034271

PATIENT
  Age: 30 Year
  Sex: Female
  Weight: 72.56 kg

DRUGS (1)
  1. MIRENA [Suspect]
     Active Substance: LEVONORGESTREL
     Indication: CONTRACEPTION
     Dosage: 20 MCG/24HR, CONT
     Route: 015
     Dates: start: 20171101, end: 20171208

REACTIONS (6)
  - Device issue [Recovering/Resolving]
  - Frustration tolerance decreased [None]
  - Medical device site injury [None]
  - Procedural pain [None]
  - Uterine perforation [Recovering/Resolving]
  - Medical device site discomfort [None]

NARRATIVE: CASE EVENT DATE: 2017
